FAERS Safety Report 19373037 (Version 1)
Quarter: 2021Q2

REPORT INFORMATION
  Report Type: Spontaneous
  Country: US (occurrence: US)
  Receive Date: 20210604
  Receipt Date: 20210604
  Transmission Date: 20210717
  Serious: Yes (Other)
  Sender: FDA-Public Use
  Company Number: None

PATIENT
  Age: 38 Year
  Sex: Female

DRUGS (1)
  1. ARISTADA [Suspect]
     Active Substance: ARIPIPRAZOLE LAUROXIL
     Indication: SCHIZOPHRENIA
     Dosage: ?          OTHER FREQUENCY:EVERY 2 MONTHS;?
     Route: 030
     Dates: start: 20210212, end: 20210603

REACTIONS (1)
  - Cognitive disorder [None]

NARRATIVE: CASE EVENT DATE: 20210603
